FAERS Safety Report 9219448 (Version 2)
Quarter: 2013Q2

REPORT INFORMATION
  Report Type: Spontaneous
  Country: US (occurrence: US)
  Receive Date: 20130409
  Receipt Date: 20130531
  Transmission Date: 20140414
  Serious: Yes (Other)
  Sender: FDA-Public Use
  Company Number: US-PFIZER INC-2013109420

PATIENT
  Sex: Female

DRUGS (1)
  1. ADVIL [Suspect]
     Indication: PYREXIA
     Dosage: 25 MG (REPORTED AS 1/8 OF A 200 MG PILL), ONCE

REACTIONS (4)
  - Hypersensitivity [Unknown]
  - Eye swelling [Not Recovered/Not Resolved]
  - Skin lesion [Unknown]
  - Malaise [Unknown]
